FAERS Safety Report 5122728-0 (Version None)
Quarter: 2006Q4

REPORT INFORMATION
  Report Type: 
  Country: None (occurrence: None)
  Receive Date: 20061004
  Receipt Date: 20060926
  Transmission Date: 20070319
  Serious: Yes (Other)
  Sender: FDA-Public Use
  Company Number: FRWYE039527SEP06

PATIENT
  Age: 40 Year
  Sex: Female

DRUGS (1)
  1. EFFEXOR XR [Suspect]
     Indication: POSTPARTUM DEPRESSION
     Dosage: 75 MG TOTAL DAILY, SOMETIMES FORGOT TO TAKE THE DRUG FOR MORE THAN 24 H ORAL
     Route: 048
     Dates: start: 20060501

REACTIONS (6)
  - DRUG WITHDRAWAL SYNDROME [None]
  - ECCHYMOSIS [None]
  - HALLUCINATION, VISUAL [None]
  - INJURY [None]
  - NIGHTMARE [None]
  - TREATMENT NONCOMPLIANCE [None]
